FAERS Safety Report 8127022-1 (Version None)
Quarter: 2012Q1

REPORT INFORMATION
  Report Type: 
  Country: None (occurrence: None)
  Receive Date: 20120210
  Receipt Date: 20120203
  Transmission Date: 20120608
  Serious: Yes (Hospitalization, Other)
  Sender: FDA-Public Use
  Company Number: ES-SANOFI-AVENTIS-2011SA014493

PATIENT
  Age: 39 Year
  Sex: Male
  Weight: 82 kg

DRUGS (6)
  1. INSULIN ASPART [Concomitant]
  2. LANTUS [Suspect]
     Route: 058
  3. SOLOSTAR [Suspect]
     Dates: start: 20100425
  4. LANTUS [Suspect]
     Route: 058
     Dates: start: 20100425, end: 20100425
  5. LANTUS [Suspect]
     Dosage: AT 09:00 HOURS
     Route: 058
  6. INSULIN ASPART [Concomitant]
     Dosage: BEFORE BREAKFAST, LUNCH AND DINNER. DOSE:4 UNIT(S)
     Route: 058

REACTIONS (3)
  - HYPOGLYCAEMIA [None]
  - INTENTIONAL OVERDOSE [None]
  - SUICIDE ATTEMPT [None]
